FAERS Safety Report 16949626 (Version 2)
Quarter: 2020Q1

REPORT INFORMATION
  Report Type: Spontaneous
  Country: ES (occurrence: ES)
  Receive Date: 20191023
  Receipt Date: 20200109
  Transmission Date: 20200409
  Serious: Yes (Hospitalization)
  Sender: FDA-Public Use
  Company Number: ES-TEVA-2019-ES-1125841

PATIENT
  Age: 51 Year
  Sex: Male

DRUGS (1)
  1. IBUPROFENO 600 MG 40 COMPRIMIDOS [Suspect]
     Active Substance: IBUPROFEN
     Dates: start: 20190903, end: 20190905

REACTIONS (3)
  - Swelling [Unknown]
  - Dysphagia [Unknown]
  - Pruritus [Unknown]

NARRATIVE: CASE EVENT DATE: 20190905
